FAERS Safety Report 25806598 (Version 1)
Quarter: 2025Q3

REPORT INFORMATION
  Report Type: Spontaneous
  Country: US (occurrence: US)
  Receive Date: 20250916
  Receipt Date: 20250916
  Transmission Date: 20251021
  Serious: Yes (Other)
  Sender: NOVARTIS
  Company Number: US-002147023-NVSC2025US136730

PATIENT
  Age: 82 Year
  Sex: Male

DRUGS (5)
  1. PLUVICTO [Suspect]
     Active Substance: LUTETIUM LU-177 VIPIVOTIDE TETRAXETAN
     Indication: Product used for unknown indication
     Route: 042
  2. BRUKINSA [Suspect]
     Active Substance: ZANUBRUTINIB
     Indication: Chronic lymphocytic leukaemia
     Dosage: 160 MG, BID
     Route: 048
     Dates: start: 20241214
  3. BRUKINSA [Suspect]
     Active Substance: ZANUBRUTINIB
     Dosage: 160 MG, BID
     Route: 048
     Dates: start: 20241214
  4. BRUKINSA [Suspect]
     Active Substance: ZANUBRUTINIB
     Dosage: 160 MG, BID
     Route: 048
     Dates: start: 20241214
  5. XARELTO [Concomitant]
     Active Substance: RIVAROXABAN
     Indication: Product used for unknown indication
     Route: 065

REACTIONS (5)
  - Haemoglobin decreased [Unknown]
  - Fatigue [Unknown]
  - Lymphoedema [Unknown]
  - Taste disorder [Unknown]
  - Drug ineffective [Unknown]
